FAERS Safety Report 21326393 (Version 2)
Quarter: 2022Q4

REPORT INFORMATION
  Report Type: Report from Study
  Country: US (occurrence: US)
  Receive Date: 20220913
  Receipt Date: 20221011
  Transmission Date: 20230113
  Serious: No
  Sender: FDA-Public Use
  Company Number: US-SA-SAC20220907000537

PATIENT
  Age: 55 Year
  Sex: Female

DRUGS (8)
  1. TERIFLUNOMIDE [Suspect]
     Active Substance: TERIFLUNOMIDE
     Indication: Multiple sclerosis
     Dosage: 14 MG
     Route: 048
     Dates: start: 20220816
  2. MOTRIN [Concomitant]
     Active Substance: IBUPROFEN
  3. CALCIUM [Concomitant]
     Active Substance: CALCIUM
  4. BIOTIN [Concomitant]
     Active Substance: BIOTIN
  5. IBUPROFEN [Concomitant]
     Active Substance: IBUPROFEN
  6. CYMBALTA [Concomitant]
     Active Substance: DULOXETINE HYDROCHLORIDE
  7. VITAMIN D NOS [Concomitant]
     Active Substance: VITAMIN D NOS
  8. RESTASIS [Concomitant]
     Active Substance: CYCLOSPORINE

REACTIONS (1)
  - Headache [Recovered/Resolved]

NARRATIVE: CASE EVENT DATE: 20220816
